FAERS Safety Report 14025760 (Version 2)
Quarter: 2017Q4

REPORT INFORMATION
  Report Type: Spontaneous
  Country: US (occurrence: US)
  Receive Date: 20170929
  Receipt Date: 20171002
  Transmission Date: 20180321
  Serious: Yes (Life-Threatening, Hospitalization)
  Sender: FDA-Public Use
  Company Number: US-FRESENIUS KABI-FK201708063

PATIENT
  Age: 54 Year
  Sex: Male

DRUGS (6)
  1. FENTANYL. [Suspect]
     Active Substance: FENTANYL
     Indication: SEDATION
  2. LIDOCAINE. [Suspect]
     Active Substance: LIDOCAINE
     Indication: ANAESTHESIA
  3. SODIUM CHLORIDE (MANUFACTURER UNKNOWN) [Suspect]
     Active Substance: SODIUM CHLORIDE
     Indication: VASOCONSTRICTION
     Route: 065
  4. MIDAZOLAM [Suspect]
     Active Substance: MIDAZOLAM HYDROCHLORIDE
     Indication: SEDATION
  5. LIDOCAINE. [Suspect]
     Active Substance: LIDOCAINE
     Indication: BRONCHOSCOPY
     Route: 061
  6. LIDOCAINE. [Suspect]
     Active Substance: LIDOCAINE
     Indication: BIOPSY LUNG

REACTIONS (5)
  - Blood pressure decreased [Recovered/Resolved]
  - Heart rate decreased [Recovered/Resolved]
  - Off label use [Unknown]
  - Atrioventricular block complete [Recovered/Resolved]
  - Confusional state [Recovered/Resolved]
